FAERS Safety Report 5751455-1 (Version None)
Quarter: 2008Q2

REPORT INFORMATION
  Report Type: 
  Country: None (occurrence: None)
  Receive Date: 20080527
  Receipt Date: 20080514
  Transmission Date: 20081010
  Serious: Yes (Hospitalization)
  Sender: FDA-Public Use
  Company Number: 2008BI010843

PATIENT
  Age: 46 Year
  Sex: Male

DRUGS (1)
  1. TYSABRI [Suspect]
     Dosage: 300 MG; QM; IV
     Route: 042
     Dates: start: 20070502

REACTIONS (2)
  - DRUG DELIVERY DEVICE IMPLANTATION [None]
  - SURGERY [None]
